FAERS Safety Report 15854989 (Version 2)
Quarter: 2019Q1

REPORT INFORMATION
  Report Type: Spontaneous
  Country: JP (occurrence: JP)
  Receive Date: 20190122
  Receipt Date: 20190130
  Transmission Date: 20190417
  Serious: Yes (Other)
  Sender: FDA-Public Use
  Company Number: JP-ALLERGAN-1902687US

PATIENT
  Age: 56 Year
  Sex: Female

DRUGS (3)
  1. URSODEOXYCHOLIC ACID - BP [Suspect]
     Active Substance: URSODIOL
     Dosage: UNK
     Route: 048
     Dates: start: 201710
  2. URSODEOXYCHOLIC ACID - BP [Suspect]
     Active Substance: URSODIOL
     Indication: HEPATIC CIRRHOSIS
     Dosage: 600 MG, QD
     Route: 048
     Dates: start: 20190115
  3. HERBAL NOS [Concomitant]
     Active Substance: HERBALS
     Route: 065

REACTIONS (1)
  - Interstitial lung disease [Unknown]
